FAERS Safety Report 7374086-9 (Version None)
Quarter: 2011Q1

REPORT INFORMATION
  Report Type: 
  Country: None (occurrence: None)
  Receive Date: 20110317
  Receipt Date: 20110301
  Transmission Date: 20110831
  Serious: Yes (Other)
  Sender: FDA-Public Use
  Company Number: TPH-00259

PATIENT
  Age: 21 Year
  Sex: Female

DRUGS (2)
  1. TRIQUILAR (ETHINYLESTRADIOL + LEVONORGESTREL) COATED TABLET (LOT # BS0 [Suspect]
     Indication: ORAL CONTRACEPTION
     Dosage: ORAL
     Route: 048
     Dates: start: 20100410, end: 20100430
  2. DIANE 35 (DIANE) MODIFIED-RELEASE FILM-COATED TABLET [Concomitant]

REACTIONS (5)
  - PREGNANCY ON ORAL CONTRACEPTIVE [None]
  - DRUG EXPOSURE DURING PREGNANCY [None]
  - PROLONGED PREGNANCY [None]
  - PLACENTA PRAEVIA HAEMORRHAGE [None]
  - HYPOMENORRHOEA [None]
